FAERS Safety Report 4786219-9 (Version None)
Quarter: 2005Q4

REPORT INFORMATION
  Report Type: 
  Country: None (occurrence: None)
  Receive Date: 20051003
  Receipt Date: 20051003
  Transmission Date: 20060501
  Serious: Yes (Hospitalization)
  Sender: FDA-Public Use
  Company Number: None

PATIENT
  Sex: Male
  Weight: 95.8 kg

DRUGS (10)
  1. CISPLATIN [Suspect]
     Indication: NASOPHARYNGEAL CANCER
     Dosage: SEE IMAGE
     Route: 042
     Dates: start: 20050726, end: 20050906
  2. CISPLATIN [Suspect]
     Indication: NASOPHARYNGEAL CANCER
     Dosage: SEE IMAGE
     Route: 042
     Dates: start: 20050906
  3. FLUOROURACIL [Suspect]
     Dosage: SEE IMAGE
     Dates: start: 20050906
  4. RADIATION [Suspect]
     Dosage: SEE IMAGE
     Dates: start: 20050906
  5. ASPIRIN [Concomitant]
  6. ATENOLOL [Concomitant]
  7. FENTANYL [Concomitant]
  8. HYZAAR [Concomitant]
  9. PERCOCET [Concomitant]
  10. ZOCOR [Concomitant]

REACTIONS (12)
  - ASTHENIA [None]
  - CANDIDIASIS [None]
  - DYSPHAGIA [None]
  - FEBRILE NEUTROPENIA [None]
  - HYPOTENSION [None]
  - LOBAR PNEUMONIA [None]
  - MENTAL STATUS CHANGES [None]
  - MUCOSAL INFLAMMATION [None]
  - PYREXIA [None]
  - RENAL FAILURE ACUTE [None]
  - RESPIRATORY DISTRESS [None]
  - WEIGHT DECREASED [None]
